FAERS Safety Report 8573640-6 (Version None)
Quarter: 2012Q2

REPORT INFORMATION
  Report Type: 
  Country: None (occurrence: None)
  Receive Date: 20120423
  Receipt Date: 20091221
  Transmission Date: 20120825
  Serious: Yes (Death)
  Sender: FDA-Public Use
  Company Number: PHEH2009US17371

PATIENT
  Age: 73 Year
  Sex: Male

DRUGS (2)
  1. EXJADE [Suspect]
     Indication: IRON OVERLOAD
     Dosage: 1000 MG DAILY, ORAL
     Route: 048
     Dates: start: 20090923
  2. EXJADE [Suspect]
     Indication: TRANSFUSION RELATED COMPLICATION
     Dosage: 1000 MG DAILY, ORAL
     Route: 048
     Dates: start: 20090923

REACTIONS (1)
  - NEOPLASM MALIGNANT [None]
